FAERS Safety Report 5406747-2 (Version None)
Quarter: 2007Q3

REPORT INFORMATION
  Report Type: 
  Country: None (occurrence: None)
  Receive Date: 20070807
  Receipt Date: 20070731
  Transmission Date: 20080115
  Serious: Yes (Other)
  Sender: FDA-Public Use
  Company Number: PHBS2007JP12784

PATIENT
  Age: 77 Year
  Sex: Male

DRUGS (3)
  1. DIOVAN [Suspect]
     Route: 048
  2. LIPITOR [Concomitant]
  3. URINORM [Concomitant]

REACTIONS (2)
  - PHARYNGEAL OEDEMA [None]
  - PHARYNGOLARYNGEAL PAIN [None]
